FAERS Safety Report 8118645-4 (Version None)
Quarter: 2012Q1

REPORT INFORMATION
  Report Type: 
  Country: None (occurrence: None)
  Receive Date: 20120207
  Receipt Date: 20120202
  Transmission Date: 20120608
  Serious: Yes (Life-Threatening, Hospitalization)
  Sender: FDA-Public Use
  Company Number: US-BAYER-2011-108408

PATIENT
  Age: 27 Year
  Sex: Female
  Weight: 74.83 kg

DRUGS (4)
  1. YAZ [Suspect]
     Indication: CONTRACEPTION
     Dosage: UNK
     Dates: start: 20080101, end: 20080101
  2. FLUTICASONE PROPIONATE [Concomitant]
     Indication: ASTHMA
     Dosage: UNK UNK, PRN
     Dates: start: 20080101, end: 20090101
  3. IBUPROFEN [Concomitant]
     Indication: PAIN
     Dosage: UNK UNK, PRN
  4. ACETAMINOPHEN [Concomitant]
     Indication: PAIN
     Dosage: UNK UNK, PRN

REACTIONS (4)
  - DEEP VEIN THROMBOSIS [None]
  - INJURY [None]
  - PAIN IN EXTREMITY [None]
  - ABASIA [None]
